FAERS Safety Report 9713968 (Version 1)
Quarter: 2013Q4

REPORT INFORMATION
  Report Type: Spontaneous
  Country: US (occurrence: US)
  Receive Date: 20131126
  Receipt Date: 20131126
  Transmission Date: 20140711
  Serious: No
  Sender: FDA-Public Use
  Company Number: US-GILEAD-2008-0018342

PATIENT
  Sex: Female
  Weight: 90.72 kg

DRUGS (15)
  1. LETAIRIS [Suspect]
     Indication: PULMONARY ARTERIAL HYPERTENSION
     Route: 048
     Dates: start: 20080722
  2. COUMADIN [Concomitant]
  3. DIGOXIN [Concomitant]
  4. TORSEMIDE [Concomitant]
  5. DILTIAZEM [Concomitant]
  6. PRINIVIL [Concomitant]
  7. ISOSORBIDE MN [Concomitant]
  8. METOPROLOL [Concomitant]
  9. SYNTHROID [Concomitant]
  10. GLUCOPHAGE [Concomitant]
  11. GLUCOTROL [Concomitant]
  12. HUMULIN N [Concomitant]
  13. RELAFEN [Concomitant]
  14. MIRAPEX [Concomitant]
  15. ZYRTEC [Concomitant]

REACTIONS (3)
  - Chest discomfort [Unknown]
  - Dyspnoea [Unknown]
  - Fluid retention [Unknown]
